FAERS Safety Report 9253245 (Version 2)
Quarter: 2013Q2

REPORT INFORMATION
  Report Type: Spontaneous
  Country: JP (occurrence: JP)
  Receive Date: 20130424
  Receipt Date: 20130503
  Transmission Date: 20140414
  Serious: Yes (Death, Hospitalization)
  Sender: FDA-Public Use
  Company Number: JP-PFIZER INC-2013119210

PATIENT
  Age: 69 Year
  Sex: Female
  Weight: 61.4 kg

DRUGS (9)
  1. CELECOX [Suspect]
     Indication: BACK PAIN
     Dosage: 100 MG, 2X/DAY
     Route: 048
     Dates: start: 20130204, end: 20130221
  2. URSO [Concomitant]
     Indication: HEPATIC CIRRHOSIS
     Dosage: UNK
     Route: 048
     Dates: start: 20080819
  3. URSO [Concomitant]
     Indication: AUTOIMMUNE HEPATITIS
  4. PARIET [Concomitant]
     Indication: GASTROOESOPHAGEAL REFLUX DISEASE
     Dosage: UNK
     Dates: start: 20081010
  5. MAGNESIUM OXIDE [Concomitant]
     Indication: CONSTIPATION
     Dosage: UNK
     Route: 048
     Dates: start: 20081010
  6. LASIX [Concomitant]
     Indication: HEPATIC CIRRHOSIS
     Dosage: UNK
     Dates: start: 20081010
  7. LASIX [Concomitant]
     Indication: AUTOIMMUNE HEPATITIS
  8. LASIX [Concomitant]
     Indication: HEPATORENAL SYNDROME
  9. ALBUMIN HUMAN [Concomitant]

REACTIONS (4)
  - Hepatic failure [Fatal]
  - Generalised oedema [Fatal]
  - Oedema peripheral [Unknown]
  - Intentional drug misuse [Unknown]
